FAERS Safety Report 6925439-1 (Version None)
Quarter: 2010Q3

REPORT INFORMATION
  Report Type: 
  Country: None (occurrence: None)
  Receive Date: 20100813
  Receipt Date: 20100813
  Transmission Date: 20110219
  Serious: Yes (Hospitalization)
  Sender: FDA-Public Use
  Company Number: None

PATIENT
  Age: 32 Year
  Sex: Female
  Weight: 95.2554 kg

DRUGS (1)
  1. BACTRIM [Suspect]
     Indication: POSTOPERATIVE CARE
     Dosage: 800MG 3X PER DAY PO
     Route: 048
     Dates: start: 20081218, end: 20081219

REACTIONS (4)
  - LOCAL SWELLING [None]
  - PHARYNGEAL OEDEMA [None]
  - SWELLING FACE [None]
  - SWOLLEN TONGUE [None]
